FAERS Safety Report 19337144 (Version 1)
Quarter: 2021Q2

REPORT INFORMATION
  Report Type: Spontaneous
  Country: US (occurrence: US)
  Receive Date: 20210530
  Receipt Date: 20210530
  Transmission Date: 20210717
  Serious: No
  Sender: FDA-Public Use
  Company Number: US-ADVANZ PHARMA-202103002510

PATIENT

DRUGS (5)
  1. PREDNISONE. [Suspect]
     Active Substance: PREDNISONE
     Dosage: UNK
  2. CABLIVI [Suspect]
     Active Substance: CAPLACIZUMAB-YHDP
     Indication: THROMBOTIC MICROANGIOPATHY
     Dosage: 11 MG, QD,  LYOPHILISATE FOR SUSPENSION FOR INJECTION
     Route: 058
     Dates: start: 20191209, end: 202001
  3. CABLIVI [Suspect]
     Active Substance: CAPLACIZUMAB-YHDP
     Dosage: 11 MG, QD, LYOPHILISATE FOR SUSPENSION FOR INJECTION
     Route: 058
     Dates: start: 20210313
  4. HYDROXYCHLOROQUINE [Suspect]
     Active Substance: HYDROXYCHLOROQUINE
     Dosage: UNKNOWN, PLAQUENIL
     Route: 065
     Dates: end: 202103
  5. CELLCEPT [Concomitant]
     Active Substance: MYCOPHENOLATE MOFETIL\MYCOPHENOLATE MOFETIL HYDROCHLORIDE
     Dosage: UNK
     Dates: start: 202103

REACTIONS (6)
  - Throat tightness [Unknown]
  - Sensory disturbance [Unknown]
  - Insomnia [Recovering/Resolving]
  - Mouth haemorrhage [Recovered/Resolved]
  - Rash [Unknown]
  - Arthralgia [Unknown]

NARRATIVE: CASE EVENT DATE: 202103
